FAERS Safety Report 21904785 (Version 4)
Quarter: 2023Q2

REPORT INFORMATION
  Report Type: Spontaneous
  Country: US (occurrence: US)
  Receive Date: 20230124
  Receipt Date: 20230411
  Transmission Date: 20230722
  Serious: No
  Sender: FDA-Public Use
  Company Number: US-BRISTOL-MYERS SQUIBB COMPANY-2023-009414

PATIENT
  Age: 72 Year
  Sex: Female
  Weight: 88 kg

DRUGS (31)
  1. REVLIMID [Suspect]
     Active Substance: LENALIDOMIDE
     Indication: Plasma cell myeloma
     Dosage: FREQUENCY: #1 X 21/28 DAYS
     Route: 048
     Dates: start: 20221229, end: 20230105
  2. REVLIMID [Suspect]
     Active Substance: LENALIDOMIDE
     Indication: Bone marrow transplant
     Dosage: 10 CAPSULE, USE AS DIRECTED
     Route: 048
     Dates: start: 20221209, end: 20221221
  3. REVLIMID [Suspect]
     Active Substance: LENALIDOMIDE
     Dosage: USE AS DIRECTED
     Route: 048
     Dates: start: 20220505, end: 20220527
  4. REVLIMID [Suspect]
     Active Substance: LENALIDOMIDE
     Dosage: USE AS DIRECTED
     Route: 048
     Dates: start: 20220527, end: 20220620
  5. REVLIMID [Suspect]
     Active Substance: LENALIDOMIDE
     Dosage: CAPSULE, USE AS DIRECTED
     Route: 048
     Dates: start: 20220620, end: 20220708
  6. REVLIMID [Suspect]
     Active Substance: LENALIDOMIDE
     Dosage: CAPSULE, USE AS DIRECTED
     Route: 048
     Dates: start: 20220708, end: 20220725
  7. REVLIMID [Suspect]
     Active Substance: LENALIDOMIDE
     Dosage: CAPSULE, USE AS DIRECTED
     Route: 048
     Dates: start: 20220725, end: 20220819
  8. REVLIMID [Suspect]
     Active Substance: LENALIDOMIDE
     Dosage: CAPSULE, USE AS DIRECTED
     Route: 048
     Dates: start: 20220819, end: 20221209
  9. REVLIMID [Suspect]
     Active Substance: LENALIDOMIDE
     Dosage: 10 CAPSULE, USE AS DIRECTED
     Route: 048
     Dates: start: 20221222, end: 20230118
  10. REVLIMID [Suspect]
     Active Substance: LENALIDOMIDE
     Dosage: USE AS DIRECTED
     Route: 048
     Dates: start: 20230118
  11. REVLIMID [Suspect]
     Active Substance: LENALIDOMIDE
     Route: 048
     Dates: start: 20230313
  12. BACTRIM DS [Suspect]
     Active Substance: SULFAMETHOXAZOLE\TRIMETHOPRIM
     Indication: Product used for unknown indication
     Dosage: 800-160 MG, M-W-F
     Route: 048
     Dates: start: 20221129
  13. AMLODIPINE BESYLATE [Concomitant]
     Active Substance: AMLODIPINE BESYLATE
     Indication: Product used for unknown indication
     Route: 048
     Dates: start: 20220505
  14. ASPIRIN [Concomitant]
     Active Substance: ASPIRIN
     Indication: Product used for unknown indication
     Route: 048
     Dates: start: 20221223
  15. CYCLOBENZAPRINE HYDROCHLORIDE [Concomitant]
     Active Substance: CYCLOBENZAPRINE HYDROCHLORIDE
     Indication: Product used for unknown indication
     Dosage: 10
     Route: 048
     Dates: start: 20220505, end: 20221223
  16. DEXAMETHASONE [Concomitant]
     Active Substance: DEXAMETHASONE
     Indication: Product used for unknown indication
     Route: 048
     Dates: start: 20220505, end: 20221223
  17. ERYTHROMYCIN [Concomitant]
     Active Substance: ERYTHROMYCIN
     Indication: Product used for unknown indication
     Dosage: 5 MG/GM
     Dates: start: 20220505, end: 20221223
  18. FUROSEMIDE [Concomitant]
     Active Substance: FUROSEMIDE
     Indication: Product used for unknown indication
     Route: 048
     Dates: start: 20220505
  19. GELATIN [Concomitant]
     Active Substance: GELATIN
     Indication: Product used for unknown indication
     Dosage: 2 CAPSULE
     Route: 048
     Dates: start: 20220506, end: 20221223
  20. HYDROXYZINE PAMOATE [Concomitant]
     Active Substance: HYDROXYZINE PAMOATE
     Indication: Product used for unknown indication
     Dosage: PRN
     Route: 048
     Dates: start: 20230119
  21. LOSARTAN POTASSIUM [Concomitant]
     Active Substance: LOSARTAN POTASSIUM
     Indication: Product used for unknown indication
     Route: 048
     Dates: start: 20220505
  22. MEDROL [Concomitant]
     Active Substance: METHYLPREDNISOLONE
     Indication: Product used for unknown indication
     Dosage: THERAPY PACK 4 M
     Route: 048
     Dates: start: 20220505, end: 20221223
  23. MEDROL [Concomitant]
     Active Substance: METHYLPREDNISOLONE
     Dosage: THERAPY PACK 4 M
     Route: 048
     Dates: start: 20230119
  24. MELOXICAM [Concomitant]
     Active Substance: MELOXICAM
     Indication: Product used for unknown indication
     Route: 048
     Dates: start: 20220505
  25. NORCO [Concomitant]
     Active Substance: ACETAMINOPHEN\HYDROCODONE BITARTRATE
     Indication: Product used for unknown indication
     Dosage: 5-325 MG
     Route: 048
     Dates: start: 20221222
  26. PREDNISONE [Concomitant]
     Active Substance: PREDNISONE
     Indication: Product used for unknown indication
     Dosage: PRN
     Route: 048
     Dates: start: 20220505
  27. SENOKOT [Concomitant]
     Active Substance: SENNOSIDES
     Indication: Product used for unknown indication
     Dosage: PRN
     Route: 048
     Dates: start: 20220506
  28. TRAMADOL HCL [Concomitant]
     Active Substance: TRAMADOL HYDROCHLORIDE
     Indication: Product used for unknown indication
     Dosage: PRN
     Route: 048
     Dates: start: 20220505, end: 20221223
  29. TRIAMCINOLONE ACETONIDE [Concomitant]
     Active Substance: TRIAMCINOLONE ACETONIDE
     Indication: Product used for unknown indication
     Dosage: EXTERNAL CR
     Dates: start: 20220621
  30. TYLENOL [Concomitant]
     Active Substance: ACETAMINOPHEN
     Indication: Product used for unknown indication
     Dosage: PRN, 2 TABS
     Route: 048
     Dates: start: 20220506
  31. VALACYCLOVIR HYDROCHLORIDE [Concomitant]
     Active Substance: VALACYCLOVIR HYDROCHLORIDE
     Indication: Product used for unknown indication
     Route: 048
     Dates: start: 20220505

REACTIONS (8)
  - Rash [Recovering/Resolving]
  - Urticaria [Recovering/Resolving]
  - Seasonal allergy [Unknown]
  - Nasal congestion [Unknown]
  - Fatigue [Recovering/Resolving]
  - Pruritus [Recovered/Resolved]
  - Sleep disorder [Unknown]
  - Rash erythematous [Recovered/Resolved]
